FAERS Safety Report 6174873-9 (Version None)
Quarter: 2009Q2

REPORT INFORMATION
  Report Type: 
  Country: None (occurrence: None)
  Receive Date: 20090430
  Receipt Date: 20081208
  Transmission Date: 20091009
  Serious: No
  Sender: FDA-Public Use
  Company Number: US-ASTRAZENECA-2008UW27276

PATIENT
  Age: 74 Year
  Sex: Female
  Weight: 71.7 kg

DRUGS (5)
  1. NEXIUM [Suspect]
     Indication: GASTROOESOPHAGEAL REFLUX DISEASE
     Route: 048
     Dates: start: 20080601
  2. TOPROL-XL [Concomitant]
     Route: 048
  3. SYNTHROID [Concomitant]
  4. VITAMINS [Concomitant]
  5. ASPIRIN [Concomitant]
     Dosage: 81MG

REACTIONS (4)
  - DYSPNOEA [None]
  - FATIGUE [None]
  - FEELING ABNORMAL [None]
  - URTICARIA [None]
